FAERS Safety Report 6410590-5 (Version None)
Quarter: 2009Q4

REPORT INFORMATION
  Report Type: 
  Country: None (occurrence: None)
  Receive Date: 20091022
  Receipt Date: 20091012
  Transmission Date: 20100525
  Serious: Yes (Hospitalization)
  Sender: FDA-Public Use
  Company Number: US-BIOGENIDEC-196844

PATIENT
  Age: 52 Year
  Sex: Male
  Weight: 90 kg

DRUGS (13)
  1. AVONEX [Suspect]
     Indication: MULTIPLE SCLEROSIS
     Route: 030
     Dates: start: 20010901, end: 20040201
  2. AVONEX [Suspect]
     Route: 030
     Dates: start: 20040201, end: 20060301
  3. TRENTAL [Concomitant]
     Indication: INTERMITTENT CLAUDICATION
  4. NOVOLIN 70/30 [Concomitant]
     Indication: DIABETES MELLITUS
  5. ACTOS [Concomitant]
     Indication: DIABETES MELLITUS
  6. METFORMIN HYDROCHLORIDE [Concomitant]
     Indication: DIABETES MELLITUS
  7. LIPITOR [Concomitant]
     Indication: BLOOD CHOLESTEROL INCREASED
  8. NORVASC [Concomitant]
     Indication: CARDIAC DISORDER
  9. COZAAR [Concomitant]
     Indication: HYPERTENSION
     Dates: start: 20030101
  10. DARVOCET [Concomitant]
     Indication: NECK PAIN
  11. MECLIZINE HCL [Concomitant]
     Indication: VERTIGO
  12. ASPIRIN [Concomitant]
  13. PLAVIX [Concomitant]
     Dates: start: 20030401

REACTIONS (7)
  - CORONARY ARTERY DISEASE [None]
  - INCISION SITE HAEMORRHAGE [None]
  - INFLUENZA LIKE ILLNESS [None]
  - MULTIPLE ALLERGIES [None]
  - MUSCULAR WEAKNESS [None]
  - MYALGIA [None]
  - THROMBOCYTOPENIA [None]
